FAERS Safety Report 21923662 (Version 1)
Quarter: 2023Q1

REPORT INFORMATION
  Report Type: Spontaneous
  Country: US (occurrence: US)
  Receive Date: 20230130
  Receipt Date: 20230130
  Transmission Date: 20230418
  Serious: Yes (Hospitalization, Other)
  Sender: FDA-Public Use
  Company Number: US-AMGEN-USASP2023010635

PATIENT
  Age: 30 Year
  Sex: Female

DRUGS (2)
  1. RITUXIMAB [Suspect]
     Active Substance: RITUXIMAB
     Indication: Optic neuritis
     Dosage: UNK UNK, QWK
     Route: 065
  2. PREDNISONE [Concomitant]
     Active Substance: PREDNISONE
     Indication: Product used for unknown indication
     Dosage: UNK
     Route: 048

REACTIONS (7)
  - Meningioma [Recovering/Resolving]
  - Eye pain [Unknown]
  - Ocular discomfort [Unknown]
  - Eyelid ptosis [Unknown]
  - Eye movement disorder [Unknown]
  - Off label use [Unknown]
  - Fatigue [Unknown]
